FAERS Safety Report 10170045 (Version 6)
Quarter: 2015Q4

REPORT INFORMATION
  Report Type: Spontaneous
  Country: US (occurrence: US)
  Receive Date: 20140513
  Receipt Date: 20151013
  Transmission Date: 20160304
  Serious: Yes (Hospitalization, Other)
  Sender: FDA-Public Use
  Company Number: US-009507513-1107USA03836

PATIENT
  Sex: Female

DRUGS (2)
  1. FOSAMAX [Suspect]
     Active Substance: ALENDRONATE SODIUM
     Dosage: 70 MG, QW
     Route: 048
     Dates: end: 2005
  2. FOSAMAX [Suspect]
     Active Substance: ALENDRONATE SODIUM
     Indication: OSTEOPOROSIS
     Dosage: UNK
     Route: 048
     Dates: start: 1995

REACTIONS (46)
  - Bone disorder [Unknown]
  - Bronchiectasis [Unknown]
  - Bundle branch block left [Unknown]
  - Blindness [Unknown]
  - Type 2 diabetes mellitus [Unknown]
  - Osteopenia [Unknown]
  - Femur fracture [Unknown]
  - Fall [Unknown]
  - Anxiety [Not Recovered/Not Resolved]
  - Osteomalacia [Unknown]
  - Hyperlipidaemia [Unknown]
  - Interstitial lung disease [Unknown]
  - Alopecia [Unknown]
  - Osteoarthritis [Unknown]
  - Peripheral vascular disorder [Unknown]
  - Open reduction of fracture [Unknown]
  - Renal tubular acidosis [Unknown]
  - Impaired healing [Unknown]
  - Psoriasis [Unknown]
  - Asthma [Unknown]
  - Constipation [Unknown]
  - Pneumonia [Unknown]
  - Depression [Not Recovered/Not Resolved]
  - Arthritis [Unknown]
  - Carotid artery stenosis [Unknown]
  - Urinary tract infection [Unknown]
  - Electrocardiogram ST-T segment abnormal [Unknown]
  - Femur fracture [Unknown]
  - Soft tissue flap operation [Unknown]
  - Hypothyroidism [Unknown]
  - Gallbladder disorder [Unknown]
  - Anaemia of chronic disease [Unknown]
  - Chronic kidney disease [Unknown]
  - Skin graft [Unknown]
  - Post procedural complication [Unknown]
  - Chronic obstructive pulmonary disease [Unknown]
  - Myelodysplastic syndrome [Unknown]
  - Rheumatoid arthritis [Unknown]
  - Peripheral venous disease [Unknown]
  - Wound infection [Not Recovered/Not Resolved]
  - Donor site complication [Unknown]
  - Medical device removal [Unknown]
  - Limb discomfort [Unknown]
  - Gastrooesophageal reflux disease [Unknown]
  - Biliary cirrhosis primary [Unknown]
  - Bundle branch block right [Unknown]

NARRATIVE: CASE EVENT DATE: 1997
